FAERS Safety Report 16580631 (Version 1)
Quarter: 2019Q3

REPORT INFORMATION
  Report Type: Spontaneous
  Country: FR (occurrence: FR)
  Receive Date: 20190716
  Receipt Date: 20190716
  Transmission Date: 20191004
  Serious: Yes (Hospitalization)
  Sender: FDA-Public Use
  Company Number: FR-JNJFOC-20190714740

PATIENT
  Age: 30 Year
  Sex: Female

DRUGS (2)
  1. BUPROPION. [Interacting]
     Active Substance: BUPROPION
     Indication: TOBACCO USER
     Route: 065
  2. TRAMADOL HYDROCHLORIDE. [Suspect]
     Active Substance: TRAMADOL HYDROCHLORIDE
     Indication: BACK PAIN
     Route: 065

REACTIONS (4)
  - Seizure [Unknown]
  - Loss of consciousness [Unknown]
  - Fall [Unknown]
  - Drug interaction [Unknown]
